FAERS Safety Report 21009587 (Version 2)
Quarter: 2022Q2

REPORT INFORMATION
  Report Type: Spontaneous
  Country: US (occurrence: US)
  Receive Date: 20220627
  Receipt Date: 20220627
  Transmission Date: 20220721
  Serious: No
  Sender: FDA-Public Use
  Company Number: ALC2022US001099

PATIENT
  Sex: Female

DRUGS (2)
  1. PATADAY ONCE DAILY RELIEF [Suspect]
     Active Substance: OLOPATADINE HYDROCHLORIDE
     Indication: Eye pruritus
     Dosage: 2 DAYS TWICE A DAY, BID
     Route: 065
  2. PATADAY ONCE DAILY RELIEF [Suspect]
     Active Substance: OLOPATADINE HYDROCHLORIDE
     Indication: Ocular hyperaemia

REACTIONS (1)
  - Drug ineffective [Not Recovered/Not Resolved]
